FAERS Safety Report 14280949 (Version 1)
Quarter: 2017Q4

REPORT INFORMATION
  Report Type: Spontaneous
  Country: US (occurrence: US)
  Receive Date: 20171213
  Receipt Date: 20171213
  Transmission Date: 20180321
  Serious: No
  Sender: FDA-Public Use
  Company Number: US-GLAXOSMITHKLINE-US2017189262

PATIENT
  Sex: Female

DRUGS (1)
  1. ADVAIR DISKUS [Suspect]
     Active Substance: FLUTICASONE PROPIONATE\SALMETEROL XINAFOATE
     Indication: DYSPNOEA
     Dosage: UNK UNK, U
     Route: 055

REACTIONS (6)
  - Chills [Unknown]
  - Hot flush [Unknown]
  - Rhinorrhoea [Unknown]
  - Cough [Unknown]
  - Intentional underdose [Unknown]
  - Throat irritation [Unknown]
